FAERS Safety Report 6091412-1 (Version None)
Quarter: 2009Q1

REPORT INFORMATION
  Report Type: 
  Country: None (occurrence: None)
  Receive Date: 20090225
  Receipt Date: 20090123
  Transmission Date: 20090719
  Serious: Yes (Other)
  Sender: FDA-Public Use
  Company Number: A0764808A

PATIENT
  Age: 55 Year
  Sex: Female

DRUGS (3)
  1. VERAMYST [Suspect]
     Dosage: 1SPR PER DAY
     Route: 045
     Dates: start: 20080901
  2. FLONASE [Suspect]
     Route: 045
  3. NO CONCURRENT MEDICATION [Concomitant]

REACTIONS (1)
  - CATARACT [None]
